FAERS Safety Report 12305684 (Version 2)
Quarter: 2016Q2

REPORT INFORMATION
  Report Type: Report from Study
  Country: NO (occurrence: NO)
  Receive Date: 20160426
  Receipt Date: 20160505
  Transmission Date: 20160815
  Serious: Yes (Life-Threatening, Hospitalization)
  Sender: FDA-Public Use
  Company Number: NO-CELGENEUS-NOR-2015124105

PATIENT
  Sex: Male

DRUGS (9)
  1. BLOOD, WHOLE [Concomitant]
     Active Substance: WHOLE BLOOD
     Indication: BLOOD DISORDER
     Route: 065
  2. REVLIMID [Suspect]
     Active Substance: LENALIDOMIDE
     Indication: ACUTE MYELOID LEUKAEMIA
     Dosage: 15 MILLIGRAM
     Route: 048
     Dates: start: 20150812, end: 20151005
  3. BUSULFAN. [Suspect]
     Active Substance: BUSULFAN
     Route: 065
     Dates: start: 20151113, end: 20151116
  4. CYCLOPHOSPHAMIDE. [Suspect]
     Active Substance: CYCLOPHOSPHAMIDE
     Indication: ACUTE MYELOID LEUKAEMIA
     Route: 065
     Dates: start: 20151124, end: 20151125
  5. CYCLOPHOSPHAMIDE. [Suspect]
     Active Substance: CYCLOPHOSPHAMIDE
     Route: 065
     Dates: start: 20151117, end: 20151117
  6. BUSULFAN. [Suspect]
     Active Substance: BUSULFAN
     Indication: ACUTE MYELOID LEUKAEMIA
     Route: 065
     Dates: start: 20151120, end: 20151123
  7. PLATELETS [Concomitant]
     Active Substance: HUMAN PLATELET, ALLOGENIC
     Indication: BLOOD DISORDER
     Route: 065
  8. GENTAMICIN. [Concomitant]
     Active Substance: GENTAMICIN
     Indication: CYTOMEGALOVIRUS INFECTION
     Route: 065
     Dates: start: 20151201, end: 20151204
  9. RBC [Concomitant]
     Active Substance: HUMAN RED BLOOD CELL
     Indication: BLOOD DISORDER
     Route: 065

REACTIONS (4)
  - Blood disorder [Not Recovered/Not Resolved]
  - Thrombocytopenia [Not Recovered/Not Resolved]
  - Cytomegalovirus infection [Not Recovered/Not Resolved]
  - Bone marrow failure [Not Recovered/Not Resolved]

NARRATIVE: CASE EVENT DATE: 20151201
